FAERS Safety Report 9107339 (Version 1)
Quarter: 2013Q1

REPORT INFORMATION
  Report Type: Spontaneous
  Country: US (occurrence: US)
  Receive Date: 20130221
  Receipt Date: 20130221
  Transmission Date: 20140127
  Serious: No
  Sender: FDA-Public Use
  Company Number: US-PFIZER INC-2013064229

PATIENT
  Age: 44 Year
  Sex: 0

DRUGS (2)
  1. IBUPROFEN [Suspect]
     Dosage: UNK
  2. LISINOPRIL [Suspect]
     Dosage: UNK

REACTIONS (1)
  - Drug hypersensitivity [Unknown]
